FAERS Safety Report 18674575 (Version 3)
Quarter: 2021Q4

REPORT INFORMATION
  Report Type: Spontaneous
  Country: CA (occurrence: CA)
  Receive Date: 20201229
  Receipt Date: 20211014
  Transmission Date: 20220303
  Serious: Yes (Hospitalization, Other)
  Sender: FDA-Public Use
  Company Number: CA-LUPIN PHARMACEUTICALS INC.-2020-11049

PATIENT
  Age: 52 Year
  Sex: Female

DRUGS (6)
  1. DULOXETINE [Suspect]
     Active Substance: DULOXETINE
     Indication: Sciatica
     Dosage: 60 MILLIGRAM, QD
     Route: 065
  2. DULOXETINE [Suspect]
     Active Substance: DULOXETINE
     Dosage: 30 MILLIGRAM, EVERY OTHER DAY, TAPERED DOWN
     Route: 065
  3. BUDESONIDE\FORMOTEROL [Suspect]
     Active Substance: BUDESONIDE\FORMOTEROL
     Indication: Asthma
     Dosage: UNK
  4. XYLOMETAZOLINE [Suspect]
     Active Substance: XYLOMETAZOLINE
     Indication: Nasal congestion
     Dosage: UNK, QD, TOPICAL NASAL DECONGESTANT SPRAY
     Route: 061
  5. XYLOMETAZOLINE [Suspect]
     Active Substance: XYLOMETAZOLINE
     Dosage: UNK, 2-3 TIMES DAILY; TOPICAL NASAL DECONGESTANT SPRAY
     Route: 061
  6. ALBUTEROL [Concomitant]
     Active Substance: ALBUTEROL
     Indication: Asthma
     Dosage: UNK, ADMINISTERED AS NEEDED
     Route: 065

REACTIONS (4)
  - Rebound nasal congestion [Recovered/Resolved]
  - Thunderclap headache [Recovered/Resolved]
  - Reversible cerebral vasoconstriction syndrome [Recovered/Resolved]
  - Off label use [Unknown]
